FAERS Safety Report 10108614 (Version 4)
Quarter: 2014Q2

REPORT INFORMATION
  Report Type: Report from Study
  Country: US (occurrence: US)
  Receive Date: 20140425
  Receipt Date: 20140619
  Transmission Date: 20141212
  Serious: Yes (Other)
  Sender: FDA-Public Use
  Company Number: US-BRISTOL-MYERS SQUIBB COMPANY-20633939

PATIENT
  Age: 25 Year
  Sex: Female

DRUGS (5)
  1. REYATAZ [Suspect]
     Route: 048
     Dates: start: 20130723
  2. NORVIR [Suspect]
     Route: 048
     Dates: start: 20130723
  3. ISENTRESS [Suspect]
     Dosage: AT THE TIME OF CONCEPTION
     Route: 048
     Dates: end: 20130723
  4. TRUVADA [Suspect]
     Dosage: 1 DF : 1 TAB/CAPS
     Route: 048
  5. RETROVIR [Suspect]
     Dosage: 1MG/KG/HOUR
     Route: 042
     Dates: start: 20131014, end: 20131014

REACTIONS (3)
  - Pericarditis [Unknown]
  - Maternal exposure during pregnancy [Recovered/Resolved]
  - Live birth [Unknown]
